FAERS Safety Report 16549331 (Version 2)
Quarter: 2019Q3

REPORT INFORMATION
  Report Type: Other
  Country: US (occurrence: US)
  Receive Date: 20190710
  Receipt Date: 20190929
  Transmission Date: 20191004
  Serious: Yes (Hospitalization, Other)
  Sender: FDA-Public Use
  Company Number: US-GLAND PHARMA LIMITED-2070582

PATIENT
  Age: 24 Month
  Sex: Female

DRUGS (7)
  1. STEROIDS [Suspect]
     Active Substance: UNSPECIFIED INGREDIENT
  2. IRINOTECAN HYDROCHLORIDE. [Suspect]
     Active Substance: IRINOTECAN HYDROCHLORIDE
  3. ETOPOSIDE. [Suspect]
     Active Substance: ETOPOSIDE
  4. DOXORUBICIN HYDROCHLORIDE. [Suspect]
     Active Substance: DOXORUBICIN HYDROCHLORIDE
     Indication: EMBRYONAL RHABDOMYOSARCOMA
  5. CYCLOPHOSPHAMIDE. [Suspect]
     Active Substance: CYCLOPHOSPHAMIDE
  6. VINCRISTINE SULFATE. [Suspect]
     Active Substance: VINCRISTINE SULFATE
  7. IFOSFAMIDE. [Suspect]
     Active Substance: IFOSFAMIDE

REACTIONS (4)
  - Cardiogenic shock [Unknown]
  - Pulmonary arterial hypertension [Unknown]
  - Neutropenia [Unknown]
  - Pyrexia [Unknown]
